FAERS Safety Report 25945044 (Version 1)
Quarter: 2025Q4

REPORT INFORMATION
  Report Type: Spontaneous
  Country: US (occurrence: US)
  Receive Date: 20251021
  Receipt Date: 20251021
  Transmission Date: 20260118
  Serious: No
  Sender: Phathom Pharmaceuticals
  Company Number: US-PHATHOM PHARMACEUTICALS INC.-2025PHT01809

PATIENT
  Age: 50 Year
  Sex: Female

DRUGS (10)
  1. VOQUEZNA [Suspect]
     Active Substance: VONOPRAZAN FUMARATE
     Indication: Oesophageal ulcer
     Dosage: 20 MG, 1X/DAY
     Route: 048
     Dates: start: 20250225, end: 2025
  2. VOQUEZNA [Suspect]
     Active Substance: VONOPRAZAN FUMARATE
     Dosage: 20 MG, EVERY 48 HOURS
     Route: 048
     Dates: start: 2025
  3. FAMOTIDINE [Concomitant]
     Active Substance: FAMOTIDINE
  4. FISH OIL [Concomitant]
     Active Substance: FISH OIL
  5. FIBERCON [Concomitant]
     Active Substance: CALCIUM POLYCARBOPHIL
  6. MAGNESIUM [Concomitant]
     Active Substance: MAGNESIUM
  7. EZETIMIBE [Concomitant]
     Active Substance: EZETIMIBE
  8. ROSUVASTATIN [Concomitant]
     Active Substance: ROSUVASTATIN
  9. LINZESS [Concomitant]
     Active Substance: LINACLOTIDE
  10. OTEZLA [Concomitant]
     Active Substance: APREMILAST

REACTIONS (2)
  - Muscle spasms [Unknown]
  - Off label use [Not Recovered/Not Resolved]

NARRATIVE: CASE EVENT DATE: 20250101
